FAERS Safety Report 11677528 (Version 1)
Quarter: 2015Q4

REPORT INFORMATION
  Report Type: Spontaneous
  Country: US (occurrence: US)
  Receive Date: 20151027
  Receipt Date: 20151027
  Transmission Date: 20160304
  Serious: No
  Sender: FDA-Public Use
  Company Number: US-ELI_LILLY_AND_COMPANY-US201010004696

PATIENT
  Sex: Female

DRUGS (6)
  1. FLUTICASONE [Concomitant]
     Active Substance: FLUTICASONE\FLUTICASONE PROPIONATE
  2. LEVOXYL [Concomitant]
     Active Substance: LEVOTHYROXINE SODIUM
  3. OSCAL 500-D [Concomitant]
  4. FORTEO [Suspect]
     Active Substance: TERIPARATIDE
     Indication: OSTEOPOROSIS
     Dosage: 20 UG, DAILY (1/D)
  5. VITAMIN D [Concomitant]
     Active Substance: CHOLECALCIFEROL
  6. ALLEGRA [Concomitant]
     Active Substance: FEXOFENADINE HYDROCHLORIDE
     Indication: HYPERSENSITIVITY

REACTIONS (2)
  - Blood blister [Unknown]
  - Alopecia [Unknown]
